FAERS Safety Report 10746350 (Version 1)
Quarter: 2015Q1

REPORT INFORMATION
  Report Type: Spontaneous
  Country: FR (occurrence: FR)
  Receive Date: 20150128
  Receipt Date: 20150128
  Transmission Date: 20150721
  Serious: Yes (Hospitalization, Other)
  Sender: FDA-Public Use
  Company Number: FR-PFIZER INC-2015026846

PATIENT
  Age: 22 Year
  Sex: Female

DRUGS (3)
  1. LEXOMIL [Suspect]
     Active Substance: BROMAZEPAM
     Dosage: 12 MG
     Dates: start: 201401, end: 20140119
  2. XANAX [Suspect]
     Active Substance: ALPRAZOLAM
     Dosage: UNK
     Dates: start: 201401, end: 20140119
  3. STRESAM [Concomitant]
     Active Substance: ETIFOXINE
     Dosage: UNK

REACTIONS (11)
  - Aggression [Unknown]
  - Mental disorder [Unknown]
  - Intentional overdose [Recovered/Resolved]
  - Toxicity to various agents [Recovered/Resolved]
  - Depression [Unknown]
  - Affect lability [Unknown]
  - Suicide attempt [Unknown]
  - Agitation [Unknown]
  - Suicidal ideation [Unknown]
  - Somnolence [Recovered/Resolved]
  - Anxiety [Unknown]

NARRATIVE: CASE EVENT DATE: 2014
